FAERS Safety Report 9948624 (Version 1)
Quarter: 2014Q1

REPORT INFORMATION
  Report Type: Spontaneous
  Country: US (occurrence: None)
  Receive Date: 20140122
  Receipt Date: 20140122
  Transmission Date: 20141002
  Serious: Yes (Other)
  Sender: FDA-Public Use
  Company Number: AEGR000195

PATIENT
  Age: 74 Year
  Sex: Female
  Weight: 100.7 kg

DRUGS (6)
  1. JUXTAPID [Suspect]
     Indication: TYPE IIA HYPERLIPIDAEMIA
     Route: 048
     Dates: start: 20131023, end: 20131026
  2. NIACIN (NICOTINIC ACID) [Concomitant]
  3. NORVASC (AMLODIPINE BESILATE) [Concomitant]
  4. WELCHOL (COLESEVELAM HYDROCHLORIDE) (625 MILLIGRAM, TABLET) (COLESEVELAM HYDROCHLORIDE) [Concomitant]
  5. LORTAB (HYDROCODONE BITARTRATE, PARACETAMOL) [Concomitant]
  6. LASIX (FUROSEMIDE) [Concomitant]

REACTIONS (2)
  - Nausea [None]
  - Vomiting [None]
